FAERS Safety Report 6749529-1 (Version None)
Quarter: 2010Q2

REPORT INFORMATION
  Report Type: 
  Country: None (occurrence: None)
  Receive Date: 20100601
  Receipt Date: 20100520
  Transmission Date: 20101027
  Serious: Yes (Hospitalization)
  Sender: FDA-Public Use
  Company Number: US-ASTRAZENECA-2010SE23046

PATIENT
  Age: 74 Year
  Sex: Female

DRUGS (2)
  1. NEXIUM [Suspect]
     Indication: ULCER
     Route: 048
     Dates: start: 20100504
  2. COUMADIN [Concomitant]

REACTIONS (6)
  - ABDOMINAL PAIN UPPER [None]
  - ATRIAL FIBRILLATION [None]
  - BLOOD URINE PRESENT [None]
  - CHROMATURIA [None]
  - CYSTITIS [None]
  - HEADACHE [None]
